FAERS Safety Report 4435231-8 (Version None)
Quarter: 2004Q3

REPORT INFORMATION
  Report Type: 
  Country: None (occurrence: None)
  Receive Date: 20040827
  Receipt Date: 20040622
  Transmission Date: 20050211
  Serious: Yes (Life-Threatening, Other)
  Sender: FDA-Public Use
  Company Number: BE-GLAXOSMITHKLINE-B0337352A

PATIENT
  Age: 77 Year
  Sex: Male

DRUGS (11)
  1. AVANDIA [Suspect]
     Route: 048
     Dates: start: 20020628, end: 20031107
  2. TERAZOSINE [Concomitant]
     Route: 065
     Dates: start: 20000501
  3. PERINDOPRIL TERT-BUTYLAMINE [Concomitant]
     Route: 048
  4. ACETYLSALICYLIC ACID [Concomitant]
     Dosage: 100MG PER DAY
     Route: 048
     Dates: start: 19940701
  5. ALLOPURINOL [Concomitant]
     Dosage: 300MG PER DAY
     Route: 048
     Dates: start: 19940701
  6. METFORMIN HCL [Concomitant]
     Dosage: 850MG THREE TIMES PER DAY
     Route: 048
  7. BISOPROLOL FUMARATE [Concomitant]
     Dosage: 10MG PER DAY
     Route: 048
  8. GLIMEPIRIDE [Concomitant]
     Route: 065
  9. INDAPAMIDE [Concomitant]
     Route: 065
  10. DIPYRIDAMOLE [Concomitant]
     Route: 065
  11. CELEBREX [Concomitant]
     Dosage: 200MG PER DAY
     Route: 065

REACTIONS (12)
  - ATRIOVENTRICULAR BLOCK [None]
  - BUNDLE BRANCH BLOCK RIGHT [None]
  - CARDIAC FAILURE [None]
  - DILATATION ATRIAL [None]
  - EJECTION FRACTION DECREASED [None]
  - HYPOCHROMIC ANAEMIA [None]
  - LOCALISED OSTEOARTHRITIS [None]
  - MYOCARDIAL ISCHAEMIA [None]
  - OEDEMA PERIPHERAL [None]
  - RIGHT VENTRICULAR FAILURE [None]
  - VITAMIN B12 DEFICIENCY [None]
  - WEIGHT INCREASED [None]
